FAERS Safety Report 9882833 (Version 1)
Quarter: 2014Q1

REPORT INFORMATION
  Report Type: Spontaneous
  Country: CH (occurrence: CH)
  Receive Date: 20140207
  Receipt Date: 20140207
  Transmission Date: 20141002
  Serious: Yes (Life-Threatening)
  Sender: FDA-Public Use
  Company Number: CH-ASTRAZENECA-2014SE08808

PATIENT
  Age: 94 Year
  Sex: Female

DRUGS (9)
  1. SEROQUEL [Suspect]
     Indication: RESTLESSNESS
     Route: 048
     Dates: end: 20140117
  2. SEROQUEL [Interacting]
     Indication: RESTLESSNESS
     Route: 048
     Dates: start: 20140117, end: 20140119
  3. HALDOL [Interacting]
     Indication: RESTLESSNESS
     Route: 048
     Dates: start: 20140117
  4. COVERSUM [Interacting]
     Dosage: 5 MG, 0.5 PER 1 DAY
     Route: 048
  5. TORASEM [Interacting]
     Route: 048
  6. VI-DE 3 [Concomitant]
     Route: 048
  7. BETAHISTIN [Concomitant]
     Route: 048
  8. TEMESTA [Concomitant]
     Route: 060
  9. ESOMEP [Concomitant]
     Route: 048

REACTIONS (4)
  - Drug interaction [Unknown]
  - Fall [Recovered/Resolved]
  - Hypotension [Recovering/Resolving]
  - Somnolence [Recovered/Resolved]
